FAERS Safety Report 5331341-1 (Version None)
Quarter: 2007Q2

REPORT INFORMATION
  Report Type: 
  Country: None (occurrence: None)
  Receive Date: 20070522
  Receipt Date: 20070515
  Transmission Date: 20071010
  Serious: Yes (Other)
  Sender: FDA-Public Use
  Company Number: US-BAYER-200710565BCC

PATIENT
  Age: 85 Year
  Sex: Female
  Weight: 49 kg

DRUGS (5)
  1. ASPIRIN [Suspect]
     Indication: ISCHAEMIC HEART DISEASE PROPHYLAXIS
     Dosage: TOTAL DAILY DOSE: 325 MG  UNIT DOSE: 325 MG
     Route: 048
     Dates: start: 20060401
  2. ASPIRIN [Suspect]
     Dosage: AS USED: 81 MG  UNIT DOSE: 81 MG
     Route: 048
     Dates: start: 20070401
  3. FELODIPINE ER [Concomitant]
  4. MAXZIDE [Concomitant]
  5. CHINESE GREEN TEA [Concomitant]

REACTIONS (3)
  - DEAFNESS [None]
  - HEPATIC ENZYME INCREASED [None]
  - VISION BLURRED [None]
